FAERS Safety Report 24434185 (Version 1)
Quarter: 2024Q4

REPORT INFORMATION
  Report Type: Report from Study
  Country: KR (occurrence: KR)
  Receive Date: 20241014
  Receipt Date: 20241014
  Transmission Date: 20250115
  Serious: Yes (Other)
  Sender: JAZZ
  Company Number: KR-BR-LTD-OS-401-029-001

PATIENT
  Age: 64 Year
  Sex: Male
  Weight: 56.4 kg

DRUGS (2)
  1. LURBINECTEDIN [Suspect]
     Active Substance: LURBINECTEDIN
     Indication: Small cell lung cancer
     Dosage: 2 MILLIGRAM/SQ. METER, Q3W
     Route: 042
     Dates: start: 20231013, end: 20231013
  2. LURBINECTEDIN [Suspect]
     Active Substance: LURBINECTEDIN
     Dosage: 2.2 MILLIGRAM/SQ. METER, Q3W
     Route: 042
     Dates: start: 20231102, end: 20231102

REACTIONS (7)
  - Pancytopenia [Not Recovered/Not Resolved]
  - Neutropenia [Recovered/Resolved]
  - Neutropenia [Recovered/Resolved]
  - Dysphonia [Recovered/Resolved]
  - Hypophagia [Not Recovered/Not Resolved]
  - Abdominal pain [Not Recovered/Not Resolved]
  - Constipation [Not Recovered/Not Resolved]

NARRATIVE: CASE EVENT DATE: 20231013
